FAERS Safety Report 4590987-9 (Version None)
Quarter: 2005Q1

REPORT INFORMATION
  Report Type: 
  Country: None (occurrence: None)
  Receive Date: 20050222
  Receipt Date: 20050222
  Transmission Date: 20050727
  Serious: Yes (Hospitalization)
  Sender: FDA-Public Use
  Company Number: None

PATIENT
  Age: 38 Year
  Sex: Male

DRUGS (9)
  1. ZISPRASIDONE [Suspect]
     Indication: SCHIZOPHRENIA
     Dosage: 60 MG BID ORAL
     Route: 048
     Dates: start: 20041015, end: 20041030
  2. COLACE [Concomitant]
  3. FOLIC ACID [Concomitant]
  4. ASPIRIN [Concomitant]
  5. MULTI-VITAMIN [Concomitant]
  6. PREVACID [Concomitant]
  7. CELEXA [Concomitant]
  8. NEURONTIN [Concomitant]
  9. DEPAKOTE [Concomitant]

REACTIONS (1)
  - CONVULSION [None]
